FAERS Safety Report 5977778-9 (Version None)
Quarter: 2008Q4

REPORT INFORMATION
  Report Type: 
  Country: None (occurrence: None)
  Receive Date: 20081202
  Receipt Date: 20081202
  Transmission Date: 20090506
  Serious: Yes (Other)
  Sender: FDA-Public Use
  Company Number: None

PATIENT
  Age: 77 Year
  Sex: Female
  Weight: 84 kg

DRUGS (15)
  1. TRANEXAMIC ACID CYKOKAPRON PFIZER [Suspect]
     Dosage: 30MG/KG X1 IV BOLUS
     Route: 040
     Dates: start: 20081118, end: 20081118
  2. TRANEXAMIC ACID [Suspect]
     Dosage: 16MG/KG/HR IV INTRAOP X 6.25H IV DRIP
     Route: 041
  3. ETOMIDATE [Concomitant]
  4. SEVOFLURANE [Concomitant]
  5. ROCURONIUM BROMIDE [Concomitant]
  6. FENTANYL-100 [Concomitant]
  7. CEFAZOLIN [Concomitant]
  8. CACL [Concomitant]
  9. MAGNESIUM SULFATE [Concomitant]
  10. LIDOCAINE [Concomitant]
  11. HEPARIN [Concomitant]
  12. PROTAMINE SULFATE [Concomitant]
  13. METHYLPREDNISOLONE 16MG TAB [Concomitant]
  14. INSULIN [Concomitant]
  15. METOPROLOL TARTRATE [Concomitant]

REACTIONS (3)
  - CONVULSION [None]
  - ENCEPHALOPATHY [None]
  - POST PROCEDURAL COMPLICATION [None]
